FAERS Safety Report 10965119 (Version 1)
Quarter: 2015Q1

REPORT INFORMATION
  Report Type: Spontaneous
  Country: GB (occurrence: GB)
  Receive Date: 20150330
  Receipt Date: 20150330
  Transmission Date: 20150721
  Serious: Yes (Other)
  Sender: FDA-Public Use
  Company Number: GB-ACCORD-029629

PATIENT
  Age: 30 Year
  Sex: Female
  Weight: 57 kg

DRUGS (1)
  1. SERTRALINE [Suspect]
     Active Substance: SERTRALINE HYDROCHLORIDE
     Indication: DEPRESSION
     Route: 048
     Dates: start: 20150209, end: 20150213

REACTIONS (7)
  - Thinking abnormal [Recovered/Resolved]
  - Depressed mood [Recovered/Resolved]
  - Anxiety [Recovered/Resolved]
  - Feeling abnormal [Unknown]
  - Tremor [Recovered/Resolved]
  - Suicidal ideation [Recovered/Resolved]
  - Insomnia [Recovered/Resolved]

NARRATIVE: CASE EVENT DATE: 20150210
